FAERS Safety Report 12930404 (Version 1)
Quarter: 2016Q4

REPORT INFORMATION
  Report Type: Spontaneous
  Country: US (occurrence: US)
  Receive Date: 20161111
  Receipt Date: 20161111
  Transmission Date: 20170207
  Serious: No
  Sender: FDA-Public Use
  Company Number: None

PATIENT
  Sex: Female

DRUGS (2)
  1. LIPITOR [Suspect]
     Active Substance: ATORVASTATIN CALCIUM
  2. CELEXA [Suspect]
     Active Substance: CITALOPRAM HYDROBROMIDE

REACTIONS (2)
  - Drug dispensing error [None]
  - Wrong drug administered [None]

NARRATIVE: CASE EVENT DATE: 2016
